FAERS Safety Report 7091411-7 (Version None)
Quarter: 2010Q4

REPORT INFORMATION
  Report Type: 
  Country: None (occurrence: None)
  Receive Date: 20101109
  Receipt Date: 20101102
  Transmission Date: 20110411
  Serious: Yes (Death, Other)
  Sender: FDA-Public Use
  Company Number: B0678691A

PATIENT
  Sex: Female

DRUGS (18)
  1. FORTUM [Suspect]
     Indication: ORAL CANDIDIASIS
     Route: 065
     Dates: start: 20100909, end: 20100914
  2. FLUCONAZOLE [Suspect]
     Indication: ORAL CANDIDIASIS
     Dosage: 50MG PER DAY
     Route: 048
     Dates: start: 20100909, end: 20100914
  3. CIPROFLOXACIN [Suspect]
     Indication: PRODUCT USED FOR UNKNOWN INDICATION
     Dosage: 250MG PER DAY
     Route: 048
     Dates: start: 20100908, end: 20100914
  4. BISOPROLOL [Concomitant]
  5. SYMBICORT [Concomitant]
  6. KALCIPOS D [Concomitant]
  7. ENALAPRIL [Concomitant]
  8. NULYTELY [Concomitant]
  9. ACETYLCYSTEINE [Concomitant]
  10. PREDNISOLON [Concomitant]
  11. FURIX [Concomitant]
  12. SPIRONOLAKTON [Concomitant]
  13. MORFIN [Concomitant]
  14. OXASCAND [Concomitant]
  15. FLUSCAND [Concomitant]
  16. DOLCONTIN [Concomitant]
  17. IMDUR [Concomitant]
  18. COMBIVENT [Concomitant]

REACTIONS (1)
  - RENAL FAILURE ACUTE [None]
